FAERS Safety Report 6125881-5 (Version None)
Quarter: 2009Q1

REPORT INFORMATION
  Report Type: 
  Country: None (occurrence: None)
  Receive Date: 20090320
  Receipt Date: 20090310
  Transmission Date: 20090719
  Serious: Yes (Hospitalization, Other)
  Sender: FDA-Public Use
  Company Number: DE-PURDUE-DEU_2009_0005086

PATIENT
  Sex: Male

DRUGS (1)
  1. OXYGESIC [Suspect]
     Indication: DRUG USE FOR UNKNOWN INDICATION
     Dosage: 140 MG, SINGLE
     Route: 048
     Dates: start: 20080301

REACTIONS (1)
  - SUICIDE ATTEMPT [None]
